FAERS Safety Report 6546197-9 (Version None)
Quarter: 2010Q1

REPORT INFORMATION
  Report Type: 
  Country: None (occurrence: None)
  Receive Date: 20100122
  Receipt Date: 20100111
  Transmission Date: 20100710
  Serious: Yes (Hospitalization)
  Sender: FDA-Public Use
  Company Number: US-WYE-H12953210

PATIENT
  Age: 77 Year
  Sex: Female

DRUGS (2)
  1. ROBITUSSIN CHEST CONGESTION [Suspect]
     Indication: CHRONIC OBSTRUCTIVE PULMONARY DISEASE
     Dosage: UNKNOWN
     Route: 048
  2. PREDNISONE [Suspect]
     Dosage: UNKNOWN
     Route: 065

REACTIONS (1)
  - TOXIC EPIDERMAL NECROLYSIS [None]
